FAERS Safety Report 7090797-7 (Version None)
Quarter: 2010Q4

REPORT INFORMATION
  Report Type: 
  Country: None (occurrence: None)
  Receive Date: 20101109
  Receipt Date: 20101104
  Transmission Date: 20110411
  Serious: Yes (Death, Life-Threatening, Other)
  Sender: FDA-Public Use
  Company Number: US-PURDUE-USA-2006-0025631

PATIENT
  Sex: Male
  Weight: 73.016 kg

DRUGS (6)
  1. OXYCONTIN [Interacting]
     Indication: DRUG ABUSE
     Dosage: UNK, UNK
  2. MORPHINE SULFATE [Suspect]
     Indication: DRUG ABUSE
     Dosage: UNK, UNK
  3. ETHANOL [Suspect]
     Indication: DRUG ABUSE
     Dosage: UNK, UNK
  4. ACETAMINOPHEN [Suspect]
     Indication: DRUG ABUSE
     Dosage: UNK, UNK
  5. PROPOXYPHENE HYDROCHLORIDE [Suspect]
     Indication: DRUG ABUSE
     Dosage: UNK, UNK
  6. ALPRAZOLAM [Suspect]
     Indication: DRUG ABUSE
     Dosage: UNK, UNK

REACTIONS (6)
  - CARDIAC DISORDER [None]
  - DRUG DEPENDENCE [None]
  - HEPATIC CIRRHOSIS [None]
  - MULTIPLE DRUG OVERDOSE ACCIDENTAL [None]
  - RESPIRATORY ARREST [None]
  - SUBSTANCE ABUSE [None]
